FAERS Safety Report 4457339-3 (Version None)
Quarter: 2004Q3

REPORT INFORMATION
  Report Type: 
  Country: None (occurrence: None)
  Receive Date: 20040922
  Receipt Date: 20040913
  Transmission Date: 20050211
  Serious: Yes (Death, Other)
  Sender: FDA-Public Use
  Company Number: US-JNJFOC-20040903658

PATIENT
  Age: 30 Year
  Sex: Female

DRUGS (6)
  1. TYLENOL PM EXTRA STRENGTH (ACETAMINOPHEN/DIPHENHYDRAMINE HCL) [Suspect]
     Indication: SUICIDE ATTEMPT
     Dosage: ORAL
     Route: 048
  2. OXYCODONE (OXYCODONE) [Suspect]
     Indication: SUICIDE ATTEMPT
     Dosage: ORAL
     Route: 048
  3. ETHYLENE GLYCOL (ALL OTHER THERAPEUTIC PRODUCTS) [Suspect]
     Indication: SUICIDE ATTEMPT
     Dosage: ORAL
     Route: 048
  4. ETHANOL (ETHANOL) [Suspect]
     Indication: SUICIDE ATTEMPT
     Dosage: ORAL
     Route: 048
  5. COCAINE (COCAINE) [Suspect]
     Indication: SUICIDE ATTEMPT
  6. METHADONE HCL [Suspect]
     Indication: SUICIDE ATTEMPT
     Dosage: ORAL
     Route: 048

REACTIONS (15)
  - ALANINE AMINOTRANSFERASE INCREASED [None]
  - ALCOHOL USE [None]
  - AMMONIA INCREASED [None]
  - ASPARTATE AMINOTRANSFERASE INCREASED [None]
  - BLOOD PH DECREASED [None]
  - CARDIAC ARREST [None]
  - CARDIO-RESPIRATORY ARREST [None]
  - CONFUSIONAL STATE [None]
  - DRUG ABUSER [None]
  - DYSARTHRIA [None]
  - FIBRIN D DIMER INCREASED [None]
  - HAEMATEMESIS [None]
  - LOWER GASTROINTESTINAL HAEMORRHAGE [None]
  - MYDRIASIS [None]
  - PROTHROMBIN TIME PROLONGED [None]
